FAERS Safety Report 5972533-8 (Version None)
Quarter: 2008Q4

REPORT INFORMATION
  Report Type: 
  Country: None (occurrence: None)
  Receive Date: 20081201
  Receipt Date: 20081117
  Transmission Date: 20090506
  Serious: Yes (Hospitalization)
  Sender: FDA-Public Use
  Company Number: B0546644A

PATIENT
  Age: 69 Year
  Sex: Male

DRUGS (2)
  1. ZOPHREN [Suspect]
     Dosage: 8MG PER DAY
     Route: 042
     Dates: start: 20081103, end: 20081103
  2. PROPOFOL [Concomitant]
     Dates: start: 20081103, end: 20081103

REACTIONS (2)
  - DIPLOPIA [None]
  - DIZZINESS [None]
